FAERS Safety Report 9858422 (Version 4)
Quarter: 2014Q1

REPORT INFORMATION
  Report Type: Other
  Country: FR (occurrence: FR)
  Receive Date: 20140131
  Receipt Date: 20140325
  Transmission Date: 20141002
  Serious: Yes (Death, Life-Threatening, Hospitalization, Other)
  Sender: FDA-Public Use
  Company Number: FR-ASTELLAS-2014EU000536

PATIENT
  Age: 53 Year
  Sex: Male

DRUGS (11)
  1. XTANDI [Suspect]
     Indication: PROSTATE CANCER
     Route: 048
     Dates: start: 20131030, end: 20140120
  2. ENANTONE                           /00726901/ [Suspect]
     Indication: PROSTATE CANCER
     Dosage: 11.25 MG, 3 MONTH
     Route: 058
     Dates: start: 20130907, end: 20131130
  3. ZOMETA [Suspect]
     Indication: BONE DISORDER
     Dosage: 4 MG, ONCE MONTHLY
     Route: 042
     Dates: start: 2012, end: 20131223
  4. XGEVA [Suspect]
     Indication: PRODUCT USED FOR UNKNOWN INDICATION
     Dosage: 4 MG/DAY, UNKNOWN FREQ.
     Route: 051
     Dates: start: 20131025
  5. OMEPRAZOLE [Concomitant]
     Indication: GASTROOESOPHAGEAL REFLUX DISEASE
     Dosage: UNK UNK, ONCE DAILY
     Route: 048
     Dates: start: 201212
  6. SOLUPRED                           /00016201/ [Concomitant]
     Indication: PRODUCT USED FOR UNKNOWN INDICATION
     Route: 065
  7. OXYCONTIN [Concomitant]
     Indication: BONE PAIN
     Route: 048
     Dates: end: 20140130
  8. SECTRAL [Concomitant]
     Indication: PRODUCT USED FOR UNKNOWN INDICATION
     Dosage: 200 MG, 1/4-0-1/4
     Route: 048
  9. PECFENT [Concomitant]
     Indication: PRODUCT USED FOR UNKNOWN INDICATION
     Route: 065
  10. NOCTAMIDE [Concomitant]
     Indication: PRODUCT USED FOR UNKNOWN INDICATION
     Route: 065
  11. ZYTIGA [Concomitant]
     Indication: PRODUCT USED FOR UNKNOWN INDICATION
     Route: 065

REACTIONS (13)
  - Prostate cancer [Fatal]
  - Subdural haematoma [Recovering/Resolving]
  - Prothrombin level decreased [Recovered/Resolved]
  - Cholestasis [Not Recovered/Not Resolved]
  - Anaemia [Not Recovered/Not Resolved]
  - Thrombocytopenia [Not Recovered/Not Resolved]
  - General physical health deterioration [Unknown]
  - Decreased appetite [Unknown]
  - Weight decreased [Unknown]
  - Cell death [Unknown]
  - Headache [Recovered/Resolved]
  - Vomiting [Recovered/Resolved]
  - Food intolerance [Unknown]
